FAERS Safety Report 9287753 (Version 1)
Quarter: 2013Q2

REPORT INFORMATION
  Report Type: Spontaneous
  Country: US (occurrence: US)
  Receive Date: 20130514
  Receipt Date: 20130514
  Transmission Date: 20140414
  Serious: No
  Sender: FDA-Public Use
  Company Number: US-PFIZER INC-2013145902

PATIENT
  Age: 47 Year
  Sex: Female

DRUGS (34)
  1. CELEBREX [Suspect]
     Dosage: UNK
  2. NEURONTIN [Suspect]
     Dosage: UNK
  3. ZOLOFT [Suspect]
     Dosage: UNK
  4. IBUPROFEN [Suspect]
     Dosage: UNK
  5. PREDNISONE [Suspect]
     Dosage: UNK
  6. ALEVE [Suspect]
     Dosage: UNK
  7. DARVOCET [Suspect]
     Dosage: UNK
  8. EXCEDRIN [Suspect]
     Dosage: UNK
  9. FLEXERIL [Suspect]
     Dosage: UNK
  10. LEVAQUIN [Suspect]
     Dosage: UNK
  11. ASPIRIN [Suspect]
     Dosage: UNK
  12. MOTRIN [Suspect]
     Dosage: UNK
  13. NAPROSYN [Suspect]
     Dosage: UNK
  14. NORFLEX [Suspect]
     Dosage: UNK
  15. PHENERGAN [Suspect]
     Dosage: UNK
  16. PLAQUENIL [Suspect]
     Dosage: UNK
  17. RELAFEN [Suspect]
     Dosage: UNK
  18. ULTRACET [Suspect]
     Dosage: UNK
  19. ULTRAM [Suspect]
     Dosage: UNK
  20. KEFLEX [Suspect]
     Dosage: UNK
  21. PAXIL [Suspect]
     Dosage: UNK
  22. CYMBALTA [Suspect]
     Dosage: UNK
  23. ACETYLSALICYLIC ACID [Suspect]
  24. CENTRUM [Concomitant]
     Dosage: UNK, 1XAM
  25. VITAMIN D3 [Concomitant]
     Dosage: 2000 IU, 2 CAPS AM
  26. VITAMIN E [Concomitant]
     Dosage: 400 IU, 2 CAPS- PM
  27. BIOTIN [Concomitant]
     Dosage: 5000 UG, 2 CAPS AM, 2 CAPS PM
  28. CELLCEPT [Concomitant]
     Dosage: 500 MG, 3 AM 2 PM
  29. LYRICA [Concomitant]
     Dosage: 100 MG, 2 AM 2 NOON 2 PM
  30. CLARITIN [Concomitant]
     Dosage: 10 MG, 10 AM 1 PM
  31. KLONOPIN [Concomitant]
     Dosage: 1 MG, 3X/DAY
  32. DILAUDID [Concomitant]
     Dosage: 8 MG, 12 DAILY IN DIVIDED DOSE
  33. PERCOCET [Concomitant]
     Dosage: 10/325 MG, 12 DAILY IN DIVIDED DOSE
  34. SOMA [Concomitant]
     Dosage: 350 MG, PRN 1/2-1 TAB 3XDAY

REACTIONS (1)
  - Drug hypersensitivity [Unknown]
